FAERS Safety Report 17233413 (Version 1)
Quarter: 2020Q1

REPORT INFORMATION
  Report Type: Spontaneous
  Country: DE (occurrence: DE)
  Receive Date: 20200104
  Receipt Date: 20200104
  Transmission Date: 20200409
  Serious: Yes (Hospitalization)
  Sender: FDA-Public Use
  Company Number: DE-TEVA-2019-DE-1161417

PATIENT
  Age: 54 Year
  Sex: Female
  Weight: 50 kg

DRUGS (6)
  1. NACL 1000 MG [Concomitant]
  2. ATORVASTATIN 20 MG [Concomitant]
     Active Substance: ATORVASTATIN
  3. PEGASYS 90 [Concomitant]
  4. BISOPROLOL 5 MG [Suspect]
     Active Substance: BISOPROLOL
     Indication: HYPERTENSION
     Dosage: 5 MILLIGRAM DAILY;
     Route: 048
     Dates: start: 20180921, end: 201912
  5. DEKRISTOL 20000 I.E. [Concomitant]
     Active Substance: CHOLECALCIFEROL
  6. LERCANIDIPIN 20 MG [Concomitant]

REACTIONS (2)
  - Pustule [Recovering/Resolving]
  - Adverse reaction [Unknown]

NARRATIVE: CASE EVENT DATE: 2019
